FAERS Safety Report 10514135 (Version 2)
Quarter: 2014Q4

REPORT INFORMATION
  Report Type: Spontaneous
  Country: US (occurrence: US)
  Receive Date: 20141013
  Receipt Date: 20141023
  Transmission Date: 20150528
  Serious: No
  Sender: FDA-Public Use
  Company Number: US-ASTRAZENECA-2014SE74729

PATIENT
  Age: 26652 Day
  Sex: Female
  Weight: 51.3 kg

DRUGS (5)
  1. NEXIUM [Suspect]
     Active Substance: ESOMEPRAZOLE MAGNESIUM
     Indication: GASTROOESOPHAGEAL REFLUX DISEASE
     Route: 048
     Dates: start: 20140930
  2. NEXIUM [Suspect]
     Active Substance: ESOMEPRAZOLE MAGNESIUM
     Indication: GASTROOESOPHAGEAL REFLUX DISEASE
     Route: 048
     Dates: start: 20140930
  3. OMEPRAZOLE RX [Suspect]
     Active Substance: OMEPRAZOLE
     Indication: GASTROOESOPHAGEAL REFLUX DISEASE
     Route: 048
     Dates: start: 20140915, end: 20140918
  4. DEXILANT [Concomitant]
     Active Substance: DEXLANSOPRAZOLE
     Route: 065
     Dates: start: 20140916
  5. NEXIUM [Suspect]
     Active Substance: ESOMEPRAZOLE MAGNESIUM
     Indication: GASTROOESOPHAGEAL REFLUX DISEASE
     Route: 048
     Dates: start: 20140919

REACTIONS (15)
  - Feeling jittery [Not Recovered/Not Resolved]
  - Weight decreased [Unknown]
  - Psychomotor hyperactivity [Unknown]
  - Nervousness [Recovering/Resolving]
  - Agitation [Unknown]
  - Dry mouth [Unknown]
  - Drug ineffective [Unknown]
  - Anxiety [Recovering/Resolving]
  - Pain [Unknown]
  - Insomnia [Recovered/Resolved]
  - Decreased appetite [Unknown]
  - Confusional state [Not Recovered/Not Resolved]
  - Depression [Unknown]
  - Intentional product misuse [Unknown]
  - Off label use [Recovered/Resolved]

NARRATIVE: CASE EVENT DATE: 20140916
